FAERS Safety Report 9018162 (Version 1)
Quarter: 2013Q1

REPORT INFORMATION
  Report Type: Spontaneous
  Country: SD (occurrence: SD)
  Receive Date: 20130117
  Receipt Date: 20130117
  Transmission Date: 20140127
  Serious: Yes (Death, Hospitalization)
  Sender: FDA-Public Use
  Company Number: PHHY2012SD124699

PATIENT
  Sex: Male

DRUGS (1)
  1. GLIVEC [Suspect]
     Dosage: 600 MG, UNK

REACTIONS (3)
  - Death [Fatal]
  - Blood uric acid increased [Unknown]
  - Pain in extremity [Unknown]
